FAERS Safety Report 6465075-7 (Version None)
Quarter: 2009Q4

REPORT INFORMATION
  Report Type: 
  Country: None (occurrence: None)
  Receive Date: 20091201
  Receipt Date: 20091118
  Transmission Date: 20100525
  Serious: Yes (Other)
  Sender: FDA-Public Use
  Company Number: JP-PFIZER INC-2009300489

PATIENT
  Age: 5 Year
  Sex: Female

DRUGS (1)
  1. IDARUBICIN HCL [Suspect]
     Indication: ACUTE MYELOID LEUKAEMIA
     Dosage: INJ
     Route: 042

REACTIONS (1)
  - FEBRILE NEUTROPENIA [None]
